FAERS Safety Report 7473835-9 (Version None)
Quarter: 2011Q2

REPORT INFORMATION
  Report Type: 
  Country: None (occurrence: None)
  Receive Date: 20110511
  Receipt Date: 20110509
  Transmission Date: 20111010
  Serious: Yes (Other)
  Sender: FDA-Public Use
  Company Number: US-B.I. PHARMACEUTICALS,INC./RIDGEFIELD-2011-BP-06789BP

PATIENT
  Age: 42 Year
  Sex: Female

DRUGS (5)
  1. PRADAXA [Suspect]
     Indication: VASCULITIS
  2. METHADONE HCL [Concomitant]
     Indication: PAIN
     Route: 048
  3. PRADAXA [Suspect]
     Indication: SYSTEMIC LUPUS ERYTHEMATOSUS
     Dosage: 300 MG
     Route: 048
     Dates: start: 20101129, end: 20101201
  4. PERCOCET [Concomitant]
     Indication: PAIN
     Route: 048
  5. PRADAXA [Suspect]
     Indication: COAGULOPATHY

REACTIONS (3)
  - CONVULSION [None]
  - SYNCOPE [None]
  - BLOOD URINE PRESENT [None]
